FAERS Safety Report 8547713-8 (Version None)
Quarter: 2012Q3

REPORT INFORMATION
  Report Type: 
  Country: None (occurrence: None)
  Receive Date: 20120727
  Receipt Date: 20120427
  Transmission Date: 20120928
  Serious: No
  Sender: FDA-Public Use
  Company Number: US-ASTRAZENECA-2012SE28065

PATIENT
  Age: 72 Year
  Sex: Male
  Weight: 88.5 kg

DRUGS (6)
  1. SEROQUEL [Suspect]
     Indication: ANXIOLYTIC THERAPY
     Route: 048
  2. MEDICATION FOR DIABETES [Concomitant]
  3. SEROQUEL [Suspect]
     Route: 048
  4. SEROQUEL [Suspect]
     Indication: SLEEP DISORDER
     Route: 048
  5. SEROQUEL [Suspect]
     Route: 048
  6. HIGH BLOOD PRESSURE PILLS [Concomitant]

REACTIONS (5)
  - BIPOLAR DISORDER [None]
  - DRUG INEFFECTIVE FOR UNAPPROVED INDICATION [None]
  - ABNORMAL DREAMS [None]
  - ANXIETY [None]
  - OFF LABEL USE [None]
